FAERS Safety Report 5925331-5 (Version None)
Quarter: 2008Q4

REPORT INFORMATION
  Report Type: 
  Country: None (occurrence: None)
  Receive Date: 20081021
  Receipt Date: 20081017
  Transmission Date: 20090506
  Serious: Yes (Hospitalization)
  Sender: FDA-Public Use
  Company Number: US-RB-005187-08

PATIENT
  Age: 26 Year
  Sex: Male

DRUGS (3)
  1. SUBOXONE [Suspect]
     Route: 060
     Dates: start: 20060101, end: 20080101
  2. SUBOXONE [Suspect]
     Dosage: VARIOUS DOSES INJECTED IV.
     Route: 042
     Dates: start: 20080101, end: 20081007
  3. XANAX [Suspect]
     Indication: DRUG USE FOR UNKNOWN INDICATION
     Dosage: CONSUMER TAKING HIGH DOSES OF XANAX (DOSES UNKNOWN)
     Route: 065

REACTIONS (2)
  - ABNORMAL BEHAVIOUR [None]
  - INTENTIONAL DRUG MISUSE [None]
